FAERS Safety Report 24892611 (Version 1)
Quarter: 2025Q1

REPORT INFORMATION
  Report Type: Spontaneous
  Country: BR (occurrence: BR)
  Receive Date: 20250128
  Receipt Date: 20250128
  Transmission Date: 20250409
  Serious: Yes (Other)
  Sender: UCB
  Company Number: BR-UCBSA-2025004157

PATIENT
  Sex: Female

DRUGS (5)
  1. VIMPAT [Suspect]
     Active Substance: LACOSAMIDE
     Indication: Epilepsy
     Dates: start: 2019, end: 2020
  2. FLUOXETINE [Concomitant]
     Active Substance: FLUOXETINE HYDROCHLORIDE
     Indication: Product used for unknown indication
  3. GAMALINE V [Concomitant]
     Indication: Product used for unknown indication
  4. DROSPIRENONE\ETHINYL ESTRADIOL [Concomitant]
     Active Substance: DROSPIRENONE\ETHINYL ESTRADIOL
     Indication: Product used for unknown indication
  5. CANNABIS SATIVA FLOWERING TOP [Concomitant]
     Active Substance: CANNABIS SATIVA FLOWERING TOP
     Indication: Product used for unknown indication

REACTIONS (5)
  - Immune system disorder [Unknown]
  - Gastrointestinal microorganism overgrowth [Recovered/Resolved]
  - Illness [Unknown]
  - Depression [Unknown]
  - Constipation [Unknown]
